FAERS Safety Report 5635670-3 (Version None)
Quarter: 2008Q1

REPORT INFORMATION
  Report Type: 
  Country: None (occurrence: None)
  Receive Date: 20080220
  Receipt Date: 20080212
  Transmission Date: 20080703
  Serious: Yes (Hospitalization)
  Sender: FDA-Public Use
  Company Number: 2008JP000756

PATIENT
  Age: 87 Year
  Sex: Female
  Weight: 45 kg

DRUGS (4)
  1. VESICARE [Suspect]
     Indication: HYPERTONIC BLADDER
     Dosage: 5 MG, UID/QD, ORAL
     Route: 048
     Dates: start: 20071229, end: 20080204
  2. MERISLON (BETAHISTINE HYDROCHLORIDE) TABLET [Concomitant]
  3. OMEPRAZOLE [Concomitant]
  4. SERMION (NICERGOLINE) TABLET [Concomitant]

REACTIONS (4)
  - BILE DUCT CANCER [None]
  - GENERALISED OEDEMA [None]
  - PANCREATIC CARCINOMA [None]
  - URINE OUTPUT DECREASED [None]
